FAERS Safety Report 17736377 (Version 2)
Quarter: 2020Q2

REPORT INFORMATION
  Report Type: Spontaneous
  Country: CA (occurrence: CA)
  Receive Date: 20200501
  Receipt Date: 20200527
  Transmission Date: 20200714
  Serious: Yes (Death)
  Sender: FDA-Public Use
  Company Number: CA-BAYER-2020-068334

PATIENT
  Age: 51 Year
  Sex: Male

DRUGS (2)
  1. TIZANIDINE. [Interacting]
     Active Substance: TIZANIDINE
     Indication: MUSCLE SPASMS
  2. CIPROFLOXACIN. [Suspect]
     Active Substance: CIPROFLOXACIN

REACTIONS (3)
  - Arrhythmia [Fatal]
  - Labelled drug-drug interaction medication error [Fatal]
  - Contraindicated product administered [Fatal]
